FAERS Safety Report 8535494-3 (Version None)
Quarter: 2012Q3

REPORT INFORMATION
  Report Type: 
  Country: None (occurrence: None)
  Receive Date: 20120718
  Receipt Date: 20120718
  Transmission Date: 20120928
  Serious: Yes (Life-Threatening)
  Sender: FDA-Public Use
  Company Number: None

PATIENT
  Sex: Male
  Weight: 138 kg

DRUGS (13)
  1. CHLORPHENARAMINE [Concomitant]
  2. LANSOPRAZOLE [Concomitant]
  3. TYLENOL (CAPLET) [Concomitant]
  4. ATENOLOL [Concomitant]
  5. METFORMIN HYDROCHLORIDE [Concomitant]
  6. HUMIRA [Suspect]
     Indication: PSORIASIS
     Dosage: 40MG EVERY 2 WEEKS SQ
     Route: 058
  7. SUCRALFATE [Concomitant]
  8. LISINOPRIL [Concomitant]
  9. AGGRENOX [Concomitant]
  10. LOVAZA [Concomitant]
  11. ONGLYZA [Concomitant]
  12. FLUTICASONE FUROATE [Concomitant]
  13. ATORVASTATIN [Concomitant]

REACTIONS (2)
  - DIFFUSE LARGE B-CELL LYMPHOMA [None]
  - CENTRAL NERVOUS SYSTEM LYMPHOMA [None]
